FAERS Safety Report 16794466 (Version 1)
Quarter: 2019Q4

REPORT INFORMATION
  Report Type: Spontaneous
  Country: US (occurrence: US)
  Receive Date: 20190910
  Receipt Date: 20190910
  Transmission Date: 20200122
  Serious: No
  Sender: FDA-Public Use
  Company Number: None

PATIENT
  Sex: Female

DRUGS (2)
  1. PEPCID [Suspect]
     Active Substance: FAMOTIDINE
  2. B6 [Suspect]
     Active Substance: PYRIDOXINE HYDROCHLORIDE

REACTIONS (3)
  - Nausea [None]
  - Treatment failure [None]
  - Vomiting [None]
